FAERS Safety Report 9719348 (Version 2)
Quarter: 2014Q1

REPORT INFORMATION
  Report Type: Spontaneous
  Country: US (occurrence: US)
  Receive Date: 20131127
  Receipt Date: 20140120
  Transmission Date: 20141002
  Serious: No
  Sender: FDA-Public Use
  Company Number: US-009507513-1311USA009449

PATIENT
  Age: 23 Year
  Sex: Female
  Weight: 60.77 kg

DRUGS (2)
  1. GANIRELIX ACETATE INJECTION [Suspect]
     Indication: BLOOD LUTEINISING HORMONE INCREASED
     Dosage: UNKNOWN
     Route: 058
     Dates: start: 20131120, end: 20131121
  2. GANIRELIX ACETATE INJECTION [Suspect]
     Indication: ASSISTED FERTILISATION

REACTIONS (2)
  - Injection site urticaria [Recovered/Resolved]
  - Urticaria [Unknown]
